FAERS Safety Report 20636044 (Version 1)
Quarter: 2022Q1

REPORT INFORMATION
  Report Type: Spontaneous
  Country: PT (occurrence: PT)
  Receive Date: 20220325
  Receipt Date: 20220325
  Transmission Date: 20220424
  Serious: Yes (Other)
  Sender: FDA-Public Use
  Company Number: None

PATIENT
  Sex: Female

DRUGS (2)
  1. ETOPOSIDE [Suspect]
     Active Substance: ETOPOSIDE
     Dosage: THERAPY START DATE :ASKU
     Route: 065
  2. CARBOPLATIN [Suspect]
     Active Substance: CARBOPLATIN
     Dosage: THERAPY START DATE :ASKU
     Route: 065

REACTIONS (2)
  - Flushing [Recovered/Resolved]
  - Non-cardiac chest pain [Recovered/Resolved]
